FAERS Safety Report 16717365 (Version 9)
Quarter: 2020Q3

REPORT INFORMATION
  Report Type: Report from Study
  Country: US (occurrence: US)
  Receive Date: 20190819
  Receipt Date: 20200127
  Transmission Date: 20201104
  Serious: Yes (Hospitalization)
  Sender: FDA-Public Use
  Company Number: US-CELGENEUS-USA-20190804589

PATIENT
  Age: 58 Year
  Sex: Female
  Weight: 106.5 kg

DRUGS (11)
  1. OTEZLA [Suspect]
     Active Substance: APREMILAST
     Indication: PSORIASIS
     Route: 048
     Dates: start: 20190605
  2. NAPROXEN. [Concomitant]
     Active Substance: NAPROXEN
     Indication: CONTUSION
     Dosage: 220 MILLIGRAM
     Route: 065
     Dates: start: 20190626, end: 20190719
  3. IBUPROFEN. [Concomitant]
     Active Substance: IBUPROFEN
     Route: 065
     Dates: end: 20190724
  4. CEFEPIME [Concomitant]
     Active Substance: CEFEPIME HYDROCHLORIDE
     Indication: PRODUCT USED FOR UNKNOWN INDICATION
     Dosage: 4 GRAM
     Route: 041
     Dates: start: 20190719, end: 20190723
  5. DEUCRAVACITINIB HYDROCHLORIDE. [Suspect]
     Active Substance: DEUCRAVACITINIB HYDROCHLORIDE
     Indication: PSORIASIS
     Route: 065
     Dates: start: 20190605
  6. PARACETAMOL [Concomitant]
     Active Substance: ACETAMINOPHEN
     Indication: CONTUSION
     Route: 065
     Dates: start: 20190626
  7. DEUCRAVACITINIB HYDROCHLORIDE. [Suspect]
     Active Substance: DEUCRAVACITINIB HYDROCHLORIDE
     Route: 065
     Dates: end: 20190801
  8. VANCOMYCIN [Concomitant]
     Active Substance: VANCOMYCIN
     Indication: PRODUCT USED FOR UNKNOWN INDICATION
     Dosage: 750 MILLIGRAM
     Route: 041
     Dates: start: 20190719, end: 20190723
  9. IBUPROFEN. [Concomitant]
     Active Substance: IBUPROFEN
     Indication: CONTUSION
     Dosage: 800 MILLIGRAM
     Route: 065
     Dates: start: 20190626, end: 20190718
  10. OTEZLA [Suspect]
     Active Substance: APREMILAST
     Route: 048
     Dates: end: 20190801
  11. NICOTINE. [Concomitant]
     Active Substance: NICOTINE
     Indication: PRODUCT USED FOR UNKNOWN INDICATION
     Route: 065
     Dates: start: 20190719, end: 20190725

REACTIONS (1)
  - Localised infection [Recovered/Resolved]

NARRATIVE: CASE EVENT DATE: 20190719
